FAERS Safety Report 23500871 (Version 1)
Quarter: 2024Q1

REPORT INFORMATION
  Report Type: Spontaneous
  Country: FR (occurrence: FR)
  Receive Date: 20240208
  Receipt Date: 20240208
  Transmission Date: 20240410
  Serious: Yes (Other)
  Sender: FDA-Public Use
  Company Number: None

PATIENT
  Age: 28 Year
  Sex: Male
  Weight: 60 kg

DRUGS (1)
  1. MINOXIDIL [Suspect]
     Active Substance: MINOXIDIL
     Indication: Hair growth abnormal
     Dosage: UNK
     Route: 003
     Dates: start: 201712, end: 201806

REACTIONS (8)
  - Suicidal ideation [Unknown]
  - Dry skin [Unknown]
  - Hair growth abnormal [Unknown]
  - Palpitations [Unknown]
  - Depression [Not Recovered/Not Resolved]
  - Loss of libido [Unknown]
  - Off label use [Unknown]
  - Off label use [Unknown]

NARRATIVE: CASE EVENT DATE: 20171201
